FAERS Safety Report 8318126-9 (Version None)
Quarter: 2012Q2

REPORT INFORMATION
  Report Type: 
  Country: None (occurrence: None)
  Receive Date: 20120427
  Receipt Date: 20120425
  Transmission Date: 20120825
  Serious: Yes (Death, Hospitalization, Other)
  Sender: FDA-Public Use
  Company Number: GB-PFIZER INC-GB-WYE-G01666708

PATIENT
  Age: 68 Year
  Sex: Male

DRUGS (3)
  1. DAUNORUBICIN HCL [Suspect]
     Indication: ACUTE MYELOID LEUKAEMIA
     Dosage: UNK
     Route: 065
     Dates: start: 20080509, end: 20080519
  2. CYTARABINE [Suspect]
     Indication: ACUTE MYELOID LEUKAEMIA
     Dosage: UNK
     Route: 065
     Dates: start: 20080509, end: 20080519
  3. GEMTUZUMAB OZOGAMICIN [Suspect]
     Indication: ACUTE MYELOID LEUKAEMIA
     Dosage: UNK
     Route: 042
     Dates: start: 20080509, end: 20080519

REACTIONS (11)
  - CARDIAC DISORDER [None]
  - PULMONARY HAEMORRHAGE [None]
  - PNEUMONIA [None]
  - DISEASE PROGRESSION [None]
  - ACUTE MYELOID LEUKAEMIA [None]
  - CHRONIC OBSTRUCTIVE PULMONARY DISEASE [None]
  - ADENOMA BENIGN [None]
  - LUNG NEOPLASM [None]
  - NEOPLASM MALIGNANT [None]
  - CLOSTRIDIAL INFECTION [None]
  - EMPHYSEMA [None]
